FAERS Safety Report 14567579 (Version 4)
Quarter: 2025Q4

REPORT INFORMATION
  Report Type: Spontaneous
  Country: EU (occurrence: EU)
  Receive Date: 20180223
  Receipt Date: 20251201
  Transmission Date: 20260117
  Serious: Yes (Other)
  Sender: MYLAN
  Company Number: EU-PFIZER INC-2018037494

PATIENT
  Age: 68 Year
  Sex: Female

DRUGS (8)
  1. OXALIPLATIN [Suspect]
     Active Substance: OXALIPLATIN
     Indication: Adenocarcinoma
     Dosage: CYCLE (UNK, CYCLIC 1ST LINE WITH CAPECITABINE (XELOX REGIMEN))
     Dates: start: 201503, end: 201606
  2. OXALIPLATIN [Suspect]
     Active Substance: OXALIPLATIN
     Indication: Colorectal cancer metastatic
     Dosage: CYCLE (UNK, CYCLIC (REINDUCTION OF XELOX REGIMEN WITH BEVACIZUMAB) FOR 4 MONTHS)
     Dates: end: 201606
  3. XELODA [Suspect]
     Active Substance: CAPECITABINE
     Indication: Colorectal cancer metastatic
     Dosage: CYCLE (UNK, CYCLIC 1ST LINE WITH CAPECITABINE (XELOX REGIMEN), FOR 6 CYCLES)
     Dates: start: 201503, end: 201606
  4. XELODA [Suspect]
     Active Substance: CAPECITABINE
     Indication: Adenocarcinoma
     Dosage: CYCLE (UNK UNK, CYCLIC (WITH BEVACIZUMAB), FOR 6 MONTHS)
     Dates: end: 201602
  5. XELODA [Suspect]
     Active Substance: CAPECITABINE
     Dosage: UNK, CYCLE (UNK, CYCLIC (REINDUCTION OF XELOX REGIMEN WITH BEVACIZUMAB) FOR 4 MONTHS)
     Dates: end: 201606
  6. BEVACIZUMAB [Suspect]
     Active Substance: BEVACIZUMAB
     Indication: Colorectal cancer metastatic
     Dosage: CYCLE (UNK, CYCLIC WITH OXALIPLATIN AND CAPECITABINE (XELOX REGIMEN), FOR 6 CYCLES)
     Dates: start: 201503, end: 201606
  7. BEVACIZUMAB [Suspect]
     Active Substance: BEVACIZUMAB
     Indication: Adenocarcinoma
     Dosage: CYCLE (UNK, CYCLIC WITH CAPECITABINE), FOR 6 MONTHS)
     Dates: end: 201602
  8. BEVACIZUMAB [Suspect]
     Active Substance: BEVACIZUMAB
     Dosage: CYCLE (UNK, CYCLIC (REINDUCTION OF XELOX REGIMEN WITH BEVACIZUMAB), FOR 4 MONTHS)
     Dates: end: 201606

REACTIONS (3)
  - Neoplasm progression [Unknown]
  - Thrombocytopenia [Unknown]
  - Neuropathy peripheral [Unknown]

NARRATIVE: CASE EVENT DATE: 20160601
